FAERS Safety Report 9539398 (Version 1)
Quarter: 2013Q3

REPORT INFORMATION
  Report Type: Spontaneous
  Country: GB (occurrence: None)
  Receive Date: 20130917
  Receipt Date: 20130917
  Transmission Date: 20140515
  Serious: Yes (Death, Hospitalization, Other)
  Sender: FDA-Public Use
  Company Number: CO-OR-UK-2013-064

PATIENT
  Age: 85 Year
  Sex: Female

DRUGS (1)
  1. PREDNISOLONE [Suspect]
     Indication: TEMPORAL ARTERITIS

REACTIONS (4)
  - Ecthyma [None]
  - Eschar [None]
  - Psoas abscess [None]
  - Pseudomonal sepsis [None]
